FAERS Safety Report 9412065 (Version 1)
Quarter: 2013Q3

REPORT INFORMATION
  Report Type: Spontaneous
  Country: GB (occurrence: None)
  Receive Date: 20130703
  Receipt Date: 20130703
  Transmission Date: 20140515
  Serious: Yes (Other)
  Sender: FDA-Public Use
  Company Number: GER/UKI/13/0030325

PATIENT
  Age: 17 Year
  Sex: Female

DRUGS (2)
  1. LEVETIRACETAM [Suspect]
     Indication: PRODUCT USED FOR UNKNOWN INDICATION
  2. TOPIRAMATE (TOPIRAMATE) [Concomitant]

REACTIONS (6)
  - Decreased appetite [None]
  - Aphasia [None]
  - Cognitive disorder [None]
  - Fear [None]
  - Grand mal convulsion [None]
  - Weight decreased [None]
